FAERS Safety Report 17669259 (Version 1)
Quarter: 2020Q2

REPORT INFORMATION
  Report Type: Other
  Country: GB (occurrence: GB)
  Receive Date: 20200415
  Receipt Date: 20200415
  Transmission Date: 20200713
  Serious: Yes (Hospitalization)
  Sender: FDA-Public Use
  Company Number: GB-EMCURE PHARMACEUTICALS LTD-2020-EPL-000442

PATIENT
  Age: 85 Year
  Sex: Female

DRUGS (8)
  1. INDAPAMIDE. [Suspect]
     Active Substance: INDAPAMIDE
     Indication: PRODUCT USED FOR UNKNOWN INDICATION
     Dosage: 2.5 MILLIGRAM, IN MORNING
     Route: 048
     Dates: end: 20190924
  2. ADCAL (CALCIUM CARBONATE) [Suspect]
     Active Substance: CALCIUM CARBONATE
     Indication: PRODUCT USED FOR UNKNOWN INDICATION
     Dosage: 2 DOSAGE FORM DAILY, 400UNIT/1.5G
     Route: 048
     Dates: end: 20190924
  3. SALBUTAMOL [Concomitant]
     Active Substance: ALBUTEROL
     Dosage: UNK, PRN
     Route: 050
  4. LISINOPRIL. [Suspect]
     Active Substance: LISINOPRIL
     Indication: PRODUCT USED FOR UNKNOWN INDICATION
     Dosage: 10 MILLIGRAM, IN MORNING
     Route: 048
     Dates: end: 20190924
  5. FORMOTEROL [Concomitant]
     Active Substance: FORMOTEROL
     Dosage: 12 MICROGRAM, QD, PUFF
     Route: 050
  6. BECLOMETASONE [Concomitant]
     Active Substance: BECLOMETHASONE DIPROPIONATE
     Dosage: 200 MICROGRAM, QD, 200 MICROGRAM, INHALAR
     Route: 050
  7. LANSOPRAZOLE. [Suspect]
     Active Substance: LANSOPRAZOLE
     Indication: PRODUCT USED FOR UNKNOWN INDICATION
     Dosage: 15 MILLIGRAM, IN MORNING
     Route: 048
     Dates: end: 20190924
  8. ATORVASTATIN [Concomitant]
     Active Substance: ATORVASTATIN
     Dosage: 20 MILLIGRAM
     Route: 048

REACTIONS (5)
  - Hypercalcaemia [Recovering/Resolving]
  - Hypomagnesaemia [Recovered/Resolved]
  - Orthostatic hypotension [Unknown]
  - Delirium [Unknown]
  - Blood electrolytes abnormal [Unknown]

NARRATIVE: CASE EVENT DATE: 20190923
